FAERS Safety Report 7353443-0 (Version None)
Quarter: 2011Q1

REPORT INFORMATION
  Report Type: 
  Country: None (occurrence: None)
  Receive Date: 20110304
  Receipt Date: 20110217
  Transmission Date: 20110831
  Serious: Yes (Other)
  Sender: FDA-Public Use
  Company Number: 20110157

PATIENT
  Age: 82 Year
  Sex: Female
  Weight: 92.0802 kg

DRUGS (3)
  1. NORMAL SALINE [Concomitant]
  2. SODIUM BICARBONATE [Suspect]
     Indication: LOCAL ANAESTHESIA
     Dosage: 32 ML IN 1000 ML NS X 2 DOSES SUBCUTANEOUS
     Route: 058
     Dates: start: 20101118, end: 20101213
  3. LIDOCAINE 1% W/ EPINEPHRINE 1:200,000 [Concomitant]

REACTIONS (6)
  - OFF LABEL USE [None]
  - INJECTION SITE RASH [None]
  - INJECTION SITE WARMTH [None]
  - INJECTION SITE PARAESTHESIA [None]
  - INJECTION SITE ERYTHEMA [None]
  - INJECTION SITE OEDEMA [None]
